FAERS Safety Report 16173061 (Version 1)
Quarter: 2019Q2

REPORT INFORMATION
  Report Type: Spontaneous
  Country: FR (occurrence: FR)
  Receive Date: 20190409
  Receipt Date: 20190409
  Transmission Date: 20190711
  Serious: Yes (Other)
  Sender: FDA-Public Use
  Company Number: FR-AUROBINDO-AUR-APL-2019-018115

PATIENT

DRUGS (2)
  1. XENETIX [Suspect]
     Active Substance: IOBITRIDOL
     Indication: AORTIC DISSECTION
     Dosage: UNK
     Route: 042
     Dates: start: 20171118, end: 20171118
  2. CEFIXIME. [Suspect]
     Active Substance: CEFIXIME
     Indication: URINARY TRACT INFECTION
     Dosage: UNK
     Route: 048
     Dates: start: 20171118, end: 20171120

REACTIONS (1)
  - Toxic skin eruption [Recovered/Resolved]

NARRATIVE: CASE EVENT DATE: 20171120
